FAERS Safety Report 21668219 (Version 1)
Quarter: 2022Q4

REPORT INFORMATION
  Report Type: Spontaneous
  Country: US (occurrence: None)
  Receive Date: 20221130
  Receipt Date: 20221130
  Transmission Date: 20230112
  Serious: No
  Sender: FDA-Public Use
  Company Number: None

PATIENT
  Sex: Male

DRUGS (2)
  1. SILDENAFIL CITRATE [Suspect]
     Active Substance: SILDENAFIL CITRATE
  2. VIAGRA [Suspect]
     Active Substance: SILDENAFIL CITRATE

REACTIONS (2)
  - Erectile dysfunction [None]
  - Epistaxis [None]
